FAERS Safety Report 7962077-6 (Version None)
Quarter: 2011Q4

REPORT INFORMATION
  Report Type: 
  Country: None (occurrence: None)
  Receive Date: 20111207
  Receipt Date: 20111129
  Transmission Date: 20120403
  Serious: Yes (Other)
  Sender: FDA-Public Use
  Company Number: US-JNJFOC-20111201852

PATIENT
  Sex: Female
  Weight: 129 kg

DRUGS (7)
  1. IBUPROFEN [Suspect]
     Indication: PAIN
     Route: 048
  2. PROVERA [Suspect]
     Indication: UTERINE CANCER
     Route: 048
     Dates: start: 20091201
  3. METFORMIN HCL [Suspect]
     Indication: DIABETES MELLITUS
     Route: 048
     Dates: start: 20110201
  4. LISINOPRIL [Concomitant]
     Indication: HYPERTENSION
  5. RANITIDINE [Concomitant]
     Indication: GALLBLADDER DISORDER
  6. PROVERA [Suspect]
     Indication: HORMONE LEVEL ABNORMAL
     Route: 048
     Dates: start: 20091201
  7. ATENOLOL [Concomitant]
     Indication: HYPERTENSION

REACTIONS (6)
  - BLOOD GLUCOSE INCREASED [None]
  - WEIGHT DECREASED [None]
  - PAIN IN EXTREMITY [None]
  - PROTEIN URINE PRESENT [None]
  - STRESS [None]
  - HYPERTENSION [None]
